FAERS Safety Report 7753870-3 (Version None)
Quarter: 2011Q3

REPORT INFORMATION
  Report Type: 
  Country: None (occurrence: None)
  Receive Date: 20110915
  Receipt Date: 20110912
  Transmission Date: 20111222
  Serious: Yes (Hospitalization, Other)
  Sender: FDA-Public Use
  Company Number: JP-ABBOTT-11P-087-0853713-00

PATIENT
  Sex: Male
  Weight: 56.5 kg

DRUGS (4)
  1. MESALAMINE [Concomitant]
     Indication: CROHN'S DISEASE
     Route: 048
  2. HUMIRA [Suspect]
     Dates: start: 20110413
  3. HUMIRA [Suspect]
     Indication: CROHN'S DISEASE
     Route: 058
     Dates: start: 20110316, end: 20110316
  4. HUMIRA [Suspect]
     Dates: start: 20110330, end: 20110330

REACTIONS (6)
  - TETANY [None]
  - DEHYDRATION [None]
  - HYPOMAGNESAEMIA [None]
  - CROHN'S DISEASE [None]
  - DIARRHOEA [None]
  - HYPOCALCAEMIA [None]
